FAERS Safety Report 14325524 (Version 1)
Quarter: 2017Q4

REPORT INFORMATION
  Report Type: Spontaneous
  Country: US (occurrence: US)
  Receive Date: 20171225
  Receipt Date: 20171225
  Transmission Date: 20180321
  Serious: No
  Sender: FDA-Public Use
  Company Number: None

PATIENT
  Age: 27 Year
  Sex: Female
  Weight: 119.25 kg

DRUGS (5)
  1. NUVARING [Concomitant]
     Active Substance: ETHINYL ESTRADIOL\ETONOGESTREL
  2. OXYCODONE [Concomitant]
     Active Substance: OXYCODONE
  3. ACETAMINOPHEN. [Concomitant]
     Active Substance: ACETAMINOPHEN
  4. GABAPENTIN. [Suspect]
     Active Substance: GABAPENTIN
     Indication: PAIN MANAGEMENT
     Dosage: ?          QUANTITY:1 CAPSULE(S);?
     Route: 048
     Dates: start: 20171214, end: 20171222
  5. IBUPROFEN. [Concomitant]
     Active Substance: IBUPROFEN

REACTIONS (11)
  - Bone graft [None]
  - Gait disturbance [None]
  - Fatigue [None]
  - Hostility [None]
  - Pathological fracture [None]
  - Dyspnoea [None]
  - Dizziness [None]
  - Abnormal behaviour [None]
  - Bone cyst [None]
  - Panic attack [None]
  - Speech disorder [None]

NARRATIVE: CASE EVENT DATE: 20171215
